FAERS Safety Report 6979661-9 (Version None)
Quarter: 2010Q3

REPORT INFORMATION
  Report Type: 
  Country: None (occurrence: None)
  Receive Date: 20100910
  Receipt Date: 20100910
  Transmission Date: 20110219
  Serious: No
  Sender: FDA-Public Use
  Company Number: None

PATIENT
  Sex: Female
  Weight: 47.6277 kg

DRUGS (1)
  1. LEXAPRO [Suspect]
     Indication: ANXIETY
     Dosage: 5 MG ONCE/DAY
     Dates: start: 20100714

REACTIONS (3)
  - ALCOHOL USE [None]
  - AMNESIA [None]
  - LOSS OF CONSCIOUSNESS [None]
